FAERS Safety Report 9911499 (Version 1)
Quarter: 2014Q1

REPORT INFORMATION
  Report Type: Spontaneous
  Country: CA (occurrence: CA)
  Receive Date: 20140219
  Receipt Date: 20140219
  Transmission Date: 20141002
  Serious: Yes (Life-Threatening, Other)
  Sender: FDA-Public Use
  Company Number: PHHY2014CA016588

PATIENT
  Age: 53 Year
  Sex: Female

DRUGS (2)
  1. CEFTRIAXONE SANDOZ [Suspect]
     Indication: LOWER RESPIRATORY TRACT INFECTION
     Route: 042
  2. LEVAQUIN [Suspect]
     Indication: LOWER RESPIRATORY TRACT INFECTION
     Route: 042

REACTIONS (7)
  - Feeling abnormal [Recovered/Resolved]
  - Anaphylactic reaction [Recovered/Resolved]
  - Dyspnoea [Recovered/Resolved]
  - Throat tightness [Unknown]
  - Swollen tongue [Recovering/Resolving]
  - Hypertension [Recovering/Resolving]
  - Wrong drug administered [Unknown]
